FAERS Safety Report 8031010-3 (Version None)
Quarter: 2012Q1

REPORT INFORMATION
  Report Type: 
  Country: None (occurrence: None)
  Receive Date: 20120105
  Receipt Date: 20111222
  Transmission Date: 20120608
  Serious: Yes (Life-Threatening, Hospitalization)
  Sender: FDA-Public Use
  Company Number: 2011MA018038

PATIENT
  Age: 54 Year
  Sex: Male

DRUGS (8)
  1. METFORMIN HYDROCHLORIDE [Suspect]
     Indication: DIABETES MELLITUS MANAGEMENT
     Dosage: PO
     Route: 048
  2. ASPIRIN [Concomitant]
  3. FUROSEMIDE [Concomitant]
  4. UNSPECIFIED THERAPEUTIC PRODUCTS (NO PREF. NAME) [Suspect]
     Indication: CORONARY ARTERY DISEASE
     Dosage: PO
     Route: 048
     Dates: start: 20111117, end: 20111209
  5. GLYCERYL TRINITRATE [Concomitant]
  6. BISOPROLOL FUMARATE [Concomitant]
  7. RAMIPRIL [Suspect]
     Indication: HYPERTENSION
     Dosage: PO
     Route: 048
  8. ATORVASTATIN [Concomitant]

REACTIONS (6)
  - FALL [None]
  - HYPOTHERMIA [None]
  - SEPSIS [None]
  - PLATELET COUNT INCREASED [None]
  - RENAL FAILURE ACUTE [None]
  - HYPOGLYCAEMIA [None]
